FAERS Safety Report 4588922-2 (Version None)
Quarter: 2005Q1

REPORT INFORMATION
  Report Type: 
  Country: None (occurrence: None)
  Receive Date: 20050216
  Receipt Date: 20050128
  Transmission Date: 20050727
  Serious: Yes (Other)
  Sender: FDA-Public Use
  Company Number: USA050187796

PATIENT
  Age: 66 Year
  Sex: Male

DRUGS (5)
  1. CYMBALTA [Suspect]
     Indication: DIABETIC NEUROPATHY
     Dosage: 30 MG DAY
     Dates: start: 20041222, end: 20041223
  2. PRAVACHOL [Concomitant]
  3. CARDIZEM CD [Concomitant]
  4. ZYRTEC [Concomitant]
  5. GLUCOPHAGE [Concomitant]

REACTIONS (3)
  - BLOOD PRESSURE INCREASED [None]
  - MYDRIASIS [None]
  - NAUSEA [None]
